FAERS Safety Report 5728565-8 (Version None)
Quarter: 2008Q2

REPORT INFORMATION
  Report Type: 
  Country: None (occurrence: None)
  Receive Date: 20080430
  Receipt Date: 20080421
  Transmission Date: 20081010
  Serious: Yes (Hospitalization)
  Sender: FDA-Public Use
  Company Number: DSA_31766_2008

PATIENT
  Sex: Male

DRUGS (5)
  1. LORAZEPAM [Suspect]
     Dosage: ORAL
     Route: 048
     Dates: start: 20080419, end: 20080419
  2. ATACAND [Suspect]
     Dosage: ORAL
     Route: 048
     Dates: start: 20080419, end: 20080419
  3. NOVALGIN /00039501/ (NOVALGIN -  METAMIZOLE SODIUM) (NOT SPECIFIED) [Suspect]
     Dosage: ORAL
     Route: 048
     Dates: start: 20080419, end: 20080419
  4. PANTOZOL /01263202/ (PANTOZOL PANTOPRAZOLE) (NOT SPECIFIED) [Suspect]
     Dosage: ORAL
     Route: 048
     Dates: start: 20080419, end: 20080419
  5. REMERGIL (REMERGIL - MIRTAZAPINE) (NOT SPECIFIED) [Suspect]
     Dosage: ORAL
     Route: 048
     Dates: start: 20080419, end: 20080419

REACTIONS (6)
  - BRADYCARDIA [None]
  - DEHYDRATION [None]
  - HYPOTENSION [None]
  - MULTIPLE DRUG OVERDOSE INTENTIONAL [None]
  - SOPOR [None]
  - SUICIDE ATTEMPT [None]
